FAERS Safety Report 4893536-0 (Version None)
Quarter: 2006Q1

REPORT INFORMATION
  Report Type: 
  Country: None (occurrence: None)
  Receive Date: 20060127
  Receipt Date: 20060120
  Transmission Date: 20060701
  Serious: Yes (Hospitalization)
  Sender: FDA-Public Use
  Company Number: 2006AP00373

PATIENT
  Age: 18479 Day
  Sex: Female
  Weight: 105.2 kg

DRUGS (2)
  1. LIGNOCAINE HYDROCHLORIDE AND ADRENALINE [Suspect]
     Indication: INFILTRATION ANAESTHESIA
     Route: 058
     Dates: start: 20050726, end: 20050726
  2. BENADRYL CHESTY FORTE [Suspect]
     Indication: NASOPHARYNGITIS
     Route: 048
     Dates: start: 20050726, end: 20050726

REACTIONS (5)
  - ANAPHYLACTIC REACTION [None]
  - ASTHENIA [None]
  - BURNING SENSATION [None]
  - DIARRHOEA [None]
  - DYSPNOEA [None]
